FAERS Safety Report 9733416 (Version 1)
Quarter: 2013Q4

REPORT INFORMATION
  Report Type: Spontaneous
  Country: US (occurrence: US)
  Receive Date: 20131205
  Receipt Date: 20131205
  Transmission Date: 20140711
  Serious: Yes (Hospitalization, Other)
  Sender: FDA-Public Use
  Company Number: US-BAYER-2013-147477

PATIENT
  Age: 25 Year
  Sex: Female
  Weight: 78.91 kg

DRUGS (11)
  1. YASMIN [Suspect]
     Dosage: UNK
  2. YAZ [Suspect]
     Dosage: UNK
  3. GIANVI [Suspect]
     Dosage: UNK
  4. OCELLA [Suspect]
     Dosage: UNK
  5. ALBUTEROL [Concomitant]
     Dosage: UNK UNK, PRN (AS NEEDED)
  6. CIPROFLOXACIN [Concomitant]
     Dosage: UNK
  7. PERCOCET [Concomitant]
     Dosage: UNK
  8. ZOFRAN [Concomitant]
     Dosage: UNK
  9. COMPAZINE [Concomitant]
     Dosage: UNK
  10. PHENERGAN [Concomitant]
     Dosage: UNK
  11. CYMBALTA [Concomitant]
     Dosage: UNK

REACTIONS (3)
  - Jugular vein thrombosis [None]
  - Intracranial venous sinus thrombosis [Recovered/Resolved]
  - Biliary dyskinesia [None]
